FAERS Safety Report 24710317 (Version 1)
Quarter: 2024Q4

REPORT INFORMATION
  Report Type: Spontaneous
  Country: PL (occurrence: PL)
  Receive Date: 20241209
  Receipt Date: 20241209
  Transmission Date: 20250115
  Serious: Yes (Life-Threatening)
  Sender: TEVA
  Company Number: None

PATIENT
  Age: 19 Year
  Sex: Female
  Weight: 80 kg

DRUGS (2)
  1. HYDROXYZINE [Suspect]
     Active Substance: HYDROXYZINE HYDROCHLORIDE
     Indication: Product used for unknown indication
     Dosage: TIME INTERVAL: TOTAL: THE PATIENT TOOK HYDROXYZINE ON THE MIDNIGHT OF 08/09/2020 TO 09/09/2020.
     Route: 065
     Dates: start: 20200908
  2. VENLAFAXINE [Suspect]
     Active Substance: VENLAFAXINE HYDROCHLORIDE
     Indication: Product used for unknown indication
     Dosage: TIME INTERVAL: TOTAL: THE PATIENT TOOK VENLAFAXINE ON THE MIDNIGHT OF 08/09/2020 TO 09/09/2020.
     Route: 065
     Dates: start: 20200908

REACTIONS (6)
  - Suicide attempt [Recovered/Resolved]
  - Agitation [Recovered/Resolved]
  - Depressed mood [Recovered/Resolved]
  - Psychomotor retardation [Recovered/Resolved]
  - Somnolence [Recovered/Resolved]
  - Aggression [Recovered/Resolved]

NARRATIVE: CASE EVENT DATE: 20200908
